FAERS Safety Report 13510687 (Version 5)
Quarter: 2017Q4

REPORT INFORMATION
  Report Type: Report from Study
  Country: CH (occurrence: CH)
  Receive Date: 20170503
  Receipt Date: 20171013
  Transmission Date: 20180320
  Serious: Yes (Death, Life-Threatening, Hospitalization)
  Sender: FDA-Public Use
  Company Number: CH-PFIZER INC-2017182354

PATIENT
  Age: 51 Year
  Sex: Female
  Weight: 46 kg

DRUGS (14)
  1. MORPHINE [Concomitant]
     Active Substance: MORPHINE
     Dosage: UNK
     Dates: start: 2017
  2. SYMBICORT [Concomitant]
     Active Substance: BUDESONIDE\FORMOTEROL FUMARATE DIHYDRATE
     Dosage: UNK
     Dates: start: 2016
  3. FRAGMIN [Suspect]
     Active Substance: DALTEPARIN SODIUM
     Dosage: 10000 IU, 1X/DAY
     Route: 058
     Dates: start: 201610
  4. IPRAMOL [Concomitant]
     Active Substance: ALBUTEROL SULFATE\IPRATROPIUM BROMIDE
     Dosage: UNK
     Dates: start: 2015
  5. BUDESONIDE. [Concomitant]
     Active Substance: BUDESONIDE
     Dosage: UNK
     Dates: start: 2015
  6. IMODIUM [Concomitant]
     Active Substance: LOPERAMIDE HYDROCHLORIDE
  7. SPIRIVA [Concomitant]
     Active Substance: TIOTROPIUM BROMIDE MONOHYDRATE
     Dosage: UNK
     Dates: start: 2016
  8. LORAZEPAM. [Concomitant]
     Active Substance: LORAZEPAM
     Dosage: UNK
     Dates: start: 2016
  9. ENOXAPARIN [Concomitant]
     Active Substance: ENOXAPARIN
     Dosage: UNK
     Dates: start: 2016
  10. TEMESTA /00273201/ [Concomitant]
     Active Substance: LORAZEPAM
  11. PALLADONE [Concomitant]
     Active Substance: HYDROMORPHONE HYDROCHLORIDE
  12. CLEXANE [Concomitant]
     Active Substance: ENOXAPARIN SODIUM
  13. CO-AMOXICILLIN [Concomitant]
     Active Substance: AMOXICILLIN\CLAVULANATE POTASSIUM
  14. NEXIUM [Concomitant]
     Active Substance: ESOMEPRAZOLE MAGNESIUM
     Dosage: UNK
     Dates: start: 201608

REACTIONS (3)
  - Acute respiratory distress syndrome [Recovered/Resolved]
  - Haemoptysis [Recovered/Resolved]
  - Acute respiratory distress syndrome [Fatal]

NARRATIVE: CASE EVENT DATE: 20170416
